FAERS Safety Report 21207763 (Version 1)
Quarter: 2022Q3

REPORT INFORMATION
  Report Type: Spontaneous
  Country: CN (occurrence: CN)
  Receive Date: 20220812
  Receipt Date: 20220812
  Transmission Date: 20221027
  Serious: Yes (Other)
  Sender: FDA-Public Use
  Company Number: CN-009507513-2208CHN003780

PATIENT
  Age: 67 Year
  Sex: Male
  Weight: 60 kg

DRUGS (1)
  1. CILASTATIN SODIUM\IMIPENEM [Suspect]
     Active Substance: CILASTATIN SODIUM\IMIPENEM
     Indication: Anti-infective therapy
     Dosage: 1 G, ONCE A DAY
     Route: 041
     Dates: start: 20220725, end: 20220727

REACTIONS (3)
  - Mental impairment [Unknown]
  - Delirium [Recovering/Resolving]
  - Psychomotor hyperactivity [Unknown]

NARRATIVE: CASE EVENT DATE: 20220727
